FAERS Safety Report 5228008-7 (Version None)
Quarter: 2007Q1

REPORT INFORMATION
  Report Type: 
  Country: None (occurrence: None)
  Receive Date: 20061205
  Receipt Date: 20061009
  Transmission Date: 20070707
  Serious: No
  Sender: FDA-Public Use
  Company Number: PHEH2006US13124

PATIENT
  Age: 41 Year
  Sex: Female
  Weight: 63.5 kg

DRUGS (2)
  1. EXJADE [Suspect]
     Dosage: 1250 MG, QD, ORAL
     Route: 048
     Dates: start: 20060906, end: 20060913
  2. EXJADE [Suspect]
     Dosage: 1250 MG, QD, ORAL
     Route: 048
     Dates: start: 20060914, end: 20061005

REACTIONS (4)
  - ABDOMINAL PAIN UPPER [None]
  - CHEST PAIN [None]
  - PHARYNGOLARYNGEAL PAIN [None]
  - THROAT IRRITATION [None]
